FAERS Safety Report 26069223 (Version 1)
Quarter: 2025Q4

REPORT INFORMATION
  Report Type: Spontaneous
  Country: US (occurrence: US)
  Receive Date: 20251120
  Receipt Date: 20251120
  Transmission Date: 20260118
  Serious: No
  Sender: AMNEAL
  Company Number: US-AMNEAL PHARMACEUTICALS-2025-AMRX-03797

PATIENT
  Sex: Male

DRUGS (2)
  1. CREXONT [Suspect]
     Active Substance: CARBIDOPA\LEVODOPA
     Indication: Product used for unknown indication
     Dosage: (52.5/210 MG), 2 CAPSULES AT 9AM, 2 CAPSULES AT 3PM AND 1 CAPSULE AT BEDTIME
     Route: 065
  2. CREXONT [Suspect]
     Active Substance: CARBIDOPA\LEVODOPA
     Dosage: (52.5/210 MG) 2 CAPSULE AT 9 AM, 1 CAPSULE AT 3 PM AND NONE BEFORE BEDTIME
     Route: 065

REACTIONS (1)
  - Dizziness [Unknown]
